FAERS Safety Report 6486440-8 (Version None)
Quarter: 2009Q4

REPORT INFORMATION
  Report Type: 
  Country: None (occurrence: None)
  Receive Date: 20091210
  Receipt Date: 20091124
  Transmission Date: 20100525
  Serious: No
  Sender: FDA-Public Use
  Company Number: US-B.I. PHARMACEUTICALS,INC./RIDGEFIELD-2009-BP-13676BP

PATIENT
  Sex: Male

DRUGS (5)
  1. FLOMAX [Suspect]
     Dosage: 0.4 MG
     Dates: start: 20091001, end: 20091001
  2. FLOMAX [Suspect]
     Dosage: 0.4 MG
     Dates: start: 20090808, end: 20090901
  3. PRILOSEC [Concomitant]
     Indication: GASTROOESOPHAGEAL REFLUX DISEASE
  4. XANAX [Concomitant]
     Indication: INSOMNIA
  5. CARVEDILOL [Concomitant]
     Indication: HYPERTENSION

REACTIONS (4)
  - BLOOD URINE PRESENT [None]
  - DYSPHONIA [None]
  - DYSPNOEA [None]
  - PULMONARY CONGESTION [None]
